FAERS Safety Report 10141809 (Version 1)
Quarter: 2014Q2

REPORT INFORMATION
  Report Type: Report from Study
  Country: US (occurrence: US)
  Receive Date: 20140429
  Receipt Date: 20140429
  Transmission Date: 20141212
  Serious: Yes (Other)
  Sender: FDA-Public Use
  Company Number: US-BAYER-2014-058980

PATIENT
  Sex: Female

DRUGS (2)
  1. ACETYLSALICYLIC ACID({=100 MG) [Suspect]
     Dosage: 81 MG, QD
  2. FOLIC ACID [Concomitant]
     Dosage: 400 MCG

REACTIONS (4)
  - Vaginal haemorrhage [None]
  - Amniotic cavity infection [None]
  - Premature labour [None]
  - Maternal exposure during pregnancy [None]
